FAERS Safety Report 10253989 (Version 1)
Quarter: 2014Q2

REPORT INFORMATION
  Report Type: Spontaneous
  Country: SE (occurrence: SE)
  Receive Date: 20140623
  Receipt Date: 20140623
  Transmission Date: 20141212
  Serious: Yes (Hospitalization, Other)
  Sender: FDA-Public Use
  Company Number: SE-PFIZER INC-2014169546

PATIENT
  Age: 47 Year
  Sex: Female

DRUGS (12)
  1. LYRICA [Suspect]
  2. XANOR [Suspect]
     Dosage: 10 MG, UNK
  3. SIMVASTATIN [Suspect]
     Dosage: 100 MG, UNK
  4. LAMOTRIGINE [Suspect]
     Dosage: 1500 MG, UNK
  5. OLANZAPINE [Suspect]
     Dosage: 50 MG, UNK
  6. QUETIAPINE FUMARATE [Suspect]
     Dosage: 2 G, UNK
  7. DUROFERON [Suspect]
     Dosage: 800 MG, UNK
  8. SELOKEN [Suspect]
  9. LEVAXIN [Suspect]
     Dosage: 500 UG, UNK
  10. TOPIMAX [Suspect]
     Dosage: 500 MG, UNK
  11. CLOMIPRAMINE [Suspect]
     Dosage: 750 MG, UNK
  12. ZOPICLONE [Suspect]
     Dosage: 300 MG, UNK

REACTIONS (5)
  - Poisoning [Unknown]
  - Hypotonia [Unknown]
  - Depressed level of consciousness [Unknown]
  - Oxygen saturation decreased [Unknown]
  - Overdose [None]
